FAERS Safety Report 15160832 (Version 1)
Quarter: 2018Q3

REPORT INFORMATION
  Report Type: Spontaneous
  Country: US (occurrence: US)
  Receive Date: 20180718
  Receipt Date: 20180718
  Transmission Date: 20181010
  Serious: No
  Sender: FDA-Public Use
  Company Number: US-TEIKOKU PHARMA USA-TPU2018-00402

PATIENT
  Age: 75 Year
  Sex: Male
  Weight: 77.63 kg

DRUGS (1)
  1. LIDOCAINE PATCH [Suspect]
     Active Substance: LIDOCAINE
     Indication: SPINAL DISORDER
     Route: 061
     Dates: start: 201703

REACTIONS (2)
  - Drug effect incomplete [Unknown]
  - Product storage error [Unknown]

NARRATIVE: CASE EVENT DATE: 20180622
